FAERS Safety Report 15424453 (Version 2)
Quarter: 2019Q4

REPORT INFORMATION
  Report Type: Spontaneous
  Country: US (occurrence: US)
  Receive Date: 20180925
  Receipt Date: 20191003
  Transmission Date: 20200122
  Serious: No
  Sender: FDA-Public Use
  Company Number: US-ENDO PHARMACEUTICALS INC-2018-040921

PATIENT
  Age: 57 Year
  Sex: Female

DRUGS (1)
  1. BENZTROPINE MESYLATE. [Suspect]
     Active Substance: BENZTROPINE MESYLATE
     Indication: OFF LABEL USE
     Dosage: 1 DF, SINGLE
     Route: 048
     Dates: start: 20180821

REACTIONS (4)
  - Pruritus [Unknown]
  - Nausea [Unknown]
  - Product odour abnormal [Unknown]
  - Off label use [Unknown]

NARRATIVE: CASE EVENT DATE: 20180821
